FAERS Safety Report 8437403-4 (Version None)
Quarter: 2012Q2

REPORT INFORMATION
  Report Type: 
  Country: None (occurrence: None)
  Receive Date: 20120614
  Receipt Date: 20120321
  Transmission Date: 20120825
  Serious: No
  Sender: FDA-Public Use
  Company Number: US-AMGEN-USASP2012015356

PATIENT
  Age: 74 Year
  Sex: Female
  Weight: 79.365 kg

DRUGS (8)
  1. VITAMIN D [Concomitant]
     Dosage: UNK, QD
  2. PROLIA [Suspect]
     Indication: OSTEOPOROSIS POSTMENOPAUSAL
     Dosage: 60 MG, Q6MO
     Dates: start: 20111108
  3. DILTIAZEM HCL [Concomitant]
     Dosage: 1 MG, QD
  4. MAGNESIUM [Concomitant]
     Dosage: UNK, QD
  5. MULTIVITAMIN AND MINERAL [Concomitant]
  6. LOVAZA [Concomitant]
     Dosage: UNK UNK, QD
  7. CALCIUM [Concomitant]
     Dosage: UNK, QD
  8. COQ10 [Concomitant]

REACTIONS (6)
  - ECZEMA [None]
  - RASH MACULAR [None]
  - RASH PUSTULAR [None]
  - RASH [None]
  - SKIN DISORDER [None]
  - BURNING SENSATION [None]
